FAERS Safety Report 7789087-6 (Version None)
Quarter: 2011Q3

REPORT INFORMATION
  Report Type: 
  Country: None (occurrence: None)
  Receive Date: 20110930
  Receipt Date: 20110922
  Transmission Date: 20111222
  Serious: Yes (Disabling)
  Sender: FDA-Public Use
  Company Number: FR-UCBSA-040063

PATIENT
  Sex: Female

DRUGS (3)
  1. DEPAKENE [Concomitant]
     Indication: PARTIAL SEIZURES
     Route: 048
     Dates: start: 20030101
  2. VIMPAT [Suspect]
     Indication: PARTIAL SEIZURES
     Route: 048
  3. VIMPAT [Suspect]
     Route: 048
     Dates: start: 20110802, end: 20110919

REACTIONS (6)
  - WRONG TECHNIQUE IN DRUG USAGE PROCESS [None]
  - ABDOMINAL PAIN [None]
  - DECREASED APPETITE [None]
  - ABULIA [None]
  - MAJOR DEPRESSION [None]
  - CRYING [None]
